FAERS Safety Report 17956167 (Version 5)
Quarter: 2021Q1

REPORT INFORMATION
  Report Type: Spontaneous
  Country: JP (occurrence: JP)
  Receive Date: 20200629
  Receipt Date: 20210310
  Transmission Date: 20210419
  Serious: Yes (Hospitalization, Other)
  Sender: FDA-Public Use
  Company Number: JP-EISAI MEDICAL RESEARCH-EC-2020-076387

PATIENT
  Age: 71 Year
  Sex: Male

DRUGS (3)
  1. ARIXTRA [Suspect]
     Active Substance: FONDAPARINUX SODIUM
     Indication: PRODUCT USED FOR UNKNOWN INDICATION
     Dosage: DOSE AND FREQUENCY NOT PROVIDED
  2. LOPEMIN [Concomitant]
     Indication: DIARRHOEA
     Dosage: DOSE AND FREQUENCY NOT PROVIDED
     Route: 065
  3. LENVIMA [Suspect]
     Active Substance: LENVATINIB
     Indication: HEPATOCELLULAR CARCINOMA
     Route: 048
     Dates: start: 20200323, end: 20200622

REACTIONS (11)
  - Pneumatosis intestinalis [Recovered/Resolved]
  - Diarrhoea [Recovered/Resolved]
  - Vomiting [Not Recovered/Not Resolved]
  - Liver disorder [Unknown]
  - Peritonitis bacterial [Recovered/Resolved]
  - Pneumatosis [Recovered/Resolved]
  - Haematemesis [Unknown]
  - Melaena [Unknown]
  - Ascites [Unknown]
  - Gastric pneumatosis [Recovered/Resolved]
  - Portal venous gas [Unknown]

NARRATIVE: CASE EVENT DATE: 2020
